FAERS Safety Report 5303183-4 (Version None)
Quarter: 2007Q2

REPORT INFORMATION
  Report Type: 
  Country: None (occurrence: None)
  Receive Date: 20070420
  Receipt Date: 20070410
  Transmission Date: 20071010
  Serious: Yes (Disabling)
  Sender: FDA-Public Use
  Company Number: US-ROCHE-444333

PATIENT
  Age: 56 Year
  Sex: Female

DRUGS (20)
  1. CAPECITABINE [Suspect]
     Indication: DRUG USE FOR UNKNOWN INDICATION
     Dosage: XELODA WAS HELD FOR THREE WEEKS FOR INCREASED BLOOD PRESSURE, HAND AND FOOT SYNDROME AND RASH.
     Route: 048
  2. CAPECITABINE [Suspect]
     Route: 048
     Dates: end: 20060715
  3. CAPECITABINE [Suspect]
     Dosage: RESUMED ON AN UNSPECIFIED DATE (DOSE NOT SPECIFIED)
     Route: 048
  4. SORAFENIB [Suspect]
     Route: 048
     Dates: start: 20060127, end: 20060815
  5. SORAFENIB [Suspect]
     Route: 048
     Dates: start: 20060615, end: 20060909
  6. SORAFENIB [Suspect]
     Route: 048
     Dates: start: 20061121
  7. CLONIDINE [Concomitant]
     Route: 048
  8. ZOLOFT [Concomitant]
     Route: 048
  9. XANAX [Concomitant]
     Route: 048
  10. FENTANYL TRANSDERMAL SYSTEM [Concomitant]
     Route: 062
  11. NORVASC [Concomitant]
     Route: 048
  12. PERCOCET [Concomitant]
     Route: 048
  13. K+ [Concomitant]
     Route: 048
  14. FERROUS SULFATE [Concomitant]
     Route: 048
  15. COLACE [Concomitant]
     Route: 048
  16. PREDNISONE TAB [Concomitant]
     Indication: SARCOIDOSIS
     Route: 048
  17. LISINOPRIL [Concomitant]
     Route: 048
  18. MULTI-VITAMIN [Concomitant]
     Route: 048
  19. LASIX [Concomitant]
     Dosage: PRN
     Route: 048
  20. SKELAXIN [Concomitant]

REACTIONS (8)
  - BLOOD PRESSURE INCREASED [None]
  - HAEMOGLOBIN DECREASED [None]
  - LACRIMATION INCREASED [None]
  - PALMAR-PLANTAR ERYTHRODYSAESTHESIA SYNDROME [None]
  - PARAESTHESIA [None]
  - RASH [None]
  - SARCOIDOSIS [None]
  - SKIN ULCER [None]
